FAERS Safety Report 24896282 (Version 1)
Quarter: 2025Q1

REPORT INFORMATION
  Report Type: Spontaneous
  Country: US (occurrence: US)
  Receive Date: 20250128
  Receipt Date: 20250128
  Transmission Date: 20250409
  Serious: Yes (Other)
  Sender: ELI LILLY AND COMPANY
  Company Number: US-ELI_LILLY_AND_COMPANY-US202501012014

PATIENT
  Age: 70 Year
  Sex: Female

DRUGS (1)
  1. VERZENIO [Suspect]
     Active Substance: ABEMACICLIB
     Indication: Breast cancer female
     Dosage: 150 MG, BID
     Route: 048

REACTIONS (16)
  - Pneumonitis [Unknown]
  - Musculoskeletal stiffness [Unknown]
  - Joint stiffness [Unknown]
  - Pain in extremity [Unknown]
  - Dyspnoea [Unknown]
  - Sensitive skin [Unknown]
  - Pain of skin [Unknown]
  - Onychoclasis [Unknown]
  - Dry skin [Unknown]
  - Fall [Unknown]
  - Cough [Unknown]
  - Arthralgia [Unknown]
  - Dehydration [Unknown]
  - Fatigue [Unknown]
  - Alopecia [Unknown]
  - Diarrhoea [Unknown]
